FAERS Safety Report 23235622 (Version 7)
Quarter: 2024Q2

REPORT INFORMATION
  Report Type: Spontaneous
  Country: US (occurrence: US)
  Receive Date: 20231128
  Receipt Date: 20240411
  Transmission Date: 20240716
  Serious: No
  Sender: FDA-Public Use
  Company Number: US-PFIZER INC-PV202300191149

PATIENT
  Age: 64 Year
  Sex: Male
  Weight: 88.8 kg

DRUGS (3)
  1. INLYTA [Suspect]
     Active Substance: AXITINIB
     Indication: Renal cancer
     Dosage: 5 MG
  2. INLYTA [Suspect]
     Active Substance: AXITINIB
     Dosage: 3 TABLETS ORAL EVERY 12 HOURS; DOSAGE STRENGTH: 1MG/3T ABS 2 TIMES DAILY
     Route: 048
  3. INLYTA [Suspect]
     Active Substance: AXITINIB
     Dosage: 1 MG

REACTIONS (4)
  - Brain fog [Unknown]
  - Memory impairment [Unknown]
  - Product dose omission in error [Unknown]
  - Product prescribing issue [Unknown]
